FAERS Safety Report 6941439-X (Version None)
Quarter: 2010Q3

REPORT INFORMATION
  Report Type: 
  Country: None (occurrence: None)
  Receive Date: 20100825
  Receipt Date: 20100813
  Transmission Date: 20110219
  Serious: Yes (Hospitalization)
  Sender: FDA-Public Use
  Company Number: FR-ELI_LILLY_AND_COMPANY-FR201007003228

PATIENT
  Age: 84 Year
  Sex: Male
  Weight: 45 kg

DRUGS (3)
  1. FORTEO [Suspect]
     Indication: OSTEOPOROTIC FRACTURE
     Dosage: 20 UG, DAILY (1/D)
     Route: 058
     Dates: start: 20100525, end: 20100620
  2. ROCALTROL [Concomitant]
     Indication: OSTEOPOROSIS
     Dosage: 0.5 MG, DAILY (1/D)
     Route: 048
     Dates: start: 20050101
  3. OROCAL [Concomitant]
     Indication: OSTEOPOROSIS
     Dosage: 500 MG, DAILY (1/D)
     Route: 048
     Dates: start: 20050101

REACTIONS (9)
  - ABDOMINAL PAIN [None]
  - BONE PAIN [None]
  - CONSTIPATION [None]
  - DECREASED APPETITE [None]
  - GENERAL PHYSICAL HEALTH DETERIORATION [None]
  - LUNG DISORDER [None]
  - PYREXIA [None]
  - VOMITING [None]
  - WEIGHT DECREASED [None]
